FAERS Safety Report 12295195 (Version 1)
Quarter: 2016Q2

REPORT INFORMATION
  Report Type: Spontaneous
  Country: US (occurrence: None)
  Receive Date: 20160421
  Receipt Date: 20160421
  Transmission Date: 20160815
  Serious: No
  Sender: FDA-Public Use
  Company Number: None

PATIENT
  Age: 82 Year
  Sex: Male

DRUGS (1)
  1. ZYTIGA [Suspect]
     Active Substance: ABIRATERONE ACETATE
     Indication: PROSTATE CANCER
     Route: 048
     Dates: start: 20160223

REACTIONS (8)
  - Cough [None]
  - Dyspnoea [None]
  - Fatigue [None]
  - Diarrhoea [None]
  - Asthenia [None]
  - Pain [None]
  - Insomnia [None]
  - Cold sweat [None]

NARRATIVE: CASE EVENT DATE: 201602
